FAERS Safety Report 18756971 (Version 1)
Quarter: 2021Q1

REPORT INFORMATION
  Report Type: Spontaneous
  Country: JP (occurrence: JP)
  Receive Date: 20210119
  Receipt Date: 20210119
  Transmission Date: 20210419
  Serious: Yes (Other)
  Sender: FDA-Public Use
  Company Number: JP-ASTRAZENECA-2021A006283

PATIENT
  Sex: Female

DRUGS (1)
  1. TAGRISSO [Suspect]
     Active Substance: OSIMERTINIB
     Indication: NON-SMALL CELL LUNG CANCER
     Route: 048

REACTIONS (10)
  - Anaemia [Unknown]
  - Swelling of eyelid [Unknown]
  - Dementia [Unknown]
  - Dry skin [Unknown]
  - Muscle twitching [Unknown]
  - Rash [Unknown]
  - Visual impairment [Unknown]
  - Feeling cold [Unknown]
  - Pain in extremity [Unknown]
  - Cerebral ischaemia [Unknown]
